FAERS Safety Report 18479034 (Version 1)
Quarter: 2020Q4

REPORT INFORMATION
  Report Type: Spontaneous
  Country: IN (occurrence: IN)
  Receive Date: 20201109
  Receipt Date: 20201109
  Transmission Date: 20210114
  Serious: Yes (Life-Threatening, Other)
  Sender: FDA-Public Use
  Company Number: IN-MICRO LABS LIMITED-ML2020-03287

PATIENT
  Age: 61 Year
  Sex: Male

DRUGS (6)
  1. MEROPENEM. [Suspect]
     Active Substance: MEROPENEM
     Indication: MYOCARDITIS
  2. LEVOFLOXACIN. [Suspect]
     Active Substance: LEVOFLOXACIN
     Indication: SEPSIS
  3. MEROPENEM. [Suspect]
     Active Substance: MEROPENEM
     Indication: SEPSIS
  4. LEVOFLOXACIN. [Suspect]
     Active Substance: LEVOFLOXACIN
     Indication: MYOCARDITIS
  5. OSELTAMIVIR [Suspect]
     Active Substance: OSELTAMIVIR
     Indication: MYOCARDITIS
  6. OSELTAMIVIR [Suspect]
     Active Substance: OSELTAMIVIR
     Indication: SEPSIS

REACTIONS (1)
  - Drug ineffective [Unknown]
